FAERS Safety Report 9579445 (Version 1)
Quarter: 2013Q4

REPORT INFORMATION
  Report Type: Spontaneous
  Country: US (occurrence: US)
  Receive Date: 20131001
  Receipt Date: 20131001
  Transmission Date: 20140711
  Serious: No
  Sender: FDA-Public Use
  Company Number: US-AMGEN-USASP2013017736

PATIENT
  Age: 48 Year
  Sex: Female
  Weight: 83.45 kg

DRUGS (8)
  1. ENBREL [Suspect]
     Indication: PSORIASIS
     Dosage: 50 MG, QWK
     Route: 058
  2. PROZAC [Concomitant]
     Dosage: 10 MG, UNK
  3. MONONESSA [Concomitant]
     Dosage: UNK
  4. PRILOSEC                           /00661201/ [Concomitant]
     Dosage: 10 MG, UNK
  5. MULTIVITAMINS, PLAIN [Concomitant]
     Dosage: UNK
  6. VITAMIN D3 [Concomitant]
     Dosage: 2000 UNIT, UNK
  7. CALCIPOTRIENE [Concomitant]
     Dosage: 0.005 %, UNK
  8. FLUOCINONIDE [Concomitant]
     Dosage: 0.05 %, UNK

REACTIONS (1)
  - Sinusitis [Recovered/Resolved]
